FAERS Safety Report 6962739-3 (Version None)
Quarter: 2010Q3

REPORT INFORMATION
  Report Type: 
  Country: None (occurrence: None)
  Receive Date: 20100902
  Receipt Date: 20100823
  Transmission Date: 20110219
  Serious: Yes (Hospitalization)
  Sender: FDA-Public Use
  Company Number: NZ-BRISTOL-MYERS SQUIBB COMPANY-15225279

PATIENT
  Age: 23 Year
  Sex: Male

DRUGS (2)
  1. EFAVIRENZ TABS [Suspect]
     Indication: PROPHYLAXIS
     Route: 048
     Dates: start: 20100701
  2. LAMIVUDINE [Suspect]

REACTIONS (4)
  - DIZZINESS [None]
  - HEADACHE [None]
  - HYPOAESTHESIA FACIAL [None]
  - OFF LABEL USE [None]
